FAERS Safety Report 12249784 (Version 4)
Quarter: 2016Q2

REPORT INFORMATION
  Report Type: Report from Study
  Country: US (occurrence: US)
  Receive Date: 20160408
  Receipt Date: 20160621
  Transmission Date: 20160815
  Serious: Yes (Hospitalization)
  Sender: FDA-Public Use
  Company Number: US-ACTELION-A-US2015-129011

PATIENT
  Age: 42 Year
  Sex: Female

DRUGS (12)
  1. VELETRI [Suspect]
     Active Substance: EPOPROSTENOL
     Dosage: 29.5 NG/KG, PER MIN
     Route: 042
  2. WARFARIN [Concomitant]
     Active Substance: WARFARIN
     Dosage: UNK
     Dates: start: 20151214, end: 20160311
  3. SPIRONOLACTONE. [Concomitant]
     Active Substance: SPIRONOLACTONE
     Dosage: 25 MG, QD
     Dates: start: 20151214, end: 20160319
  4. DIGOXIN. [Concomitant]
     Active Substance: DIGOXIN
     Dosage: 125 MCG, QD
     Route: 048
     Dates: start: 20151214, end: 20160311
  5. RISPERIDONE. [Concomitant]
     Active Substance: RISPERIDONE
     Dosage: 12.5 MG, Q2WEEK
     Route: 030
  6. ETHACRYNIC ACID. [Concomitant]
     Active Substance: ETHACRYNIC ACID
     Dosage: 100 MG, QAM
     Dates: start: 20160216
  7. GLIPIZIDE. [Concomitant]
     Active Substance: GLIPIZIDE
     Dosage: 15 MG, BID
     Dates: end: 20160310
  8. SILDENAFIL. [Concomitant]
     Active Substance: SILDENAFIL
     Indication: PULMONARY ARTERIAL HYPERTENSION
  9. VELETRI [Suspect]
     Active Substance: EPOPROSTENOL
     Indication: PULMONARY ARTERIAL HYPERTENSION
     Dosage: 14.5 NG/KG, PER MIN
     Route: 042
     Dates: start: 20151206
  10. ETHACRYNIC ACID. [Concomitant]
     Active Substance: ETHACRYNIC ACID
     Dosage: 50 MG, QD
     Dates: start: 20160216
  11. RISPERIDONE. [Concomitant]
     Active Substance: RISPERIDONE
     Dosage: 2 MG, QD
     Dates: start: 20140327
  12. MICROGESTIN [Concomitant]
     Active Substance: ETHINYL ESTRADIOL\NORETHINDRONE ACETATE
     Dosage: 1 TABLET, QD

REACTIONS (16)
  - Hepatic congestion [Unknown]
  - Pulmonary arterial hypertension [Unknown]
  - Pneumonia [Unknown]
  - Abdominal pain [Not Recovered/Not Resolved]
  - Incorrect dose administered [Recovered/Resolved]
  - Acute respiratory distress syndrome [Unknown]
  - Sepsis [Unknown]
  - Headache [Unknown]
  - Nausea [Recovered/Resolved]
  - Fluid overload [Unknown]
  - Pain in jaw [Unknown]
  - Rash generalised [Unknown]
  - Dehydration [Unknown]
  - Vomiting [Recovered/Resolved]
  - Diarrhoea [Recovered/Resolved]
  - Constipation [Unknown]

NARRATIVE: CASE EVENT DATE: 20160306
